FAERS Safety Report 23938891 (Version 1)
Quarter: 2024Q2

REPORT INFORMATION
  Report Type: Spontaneous
  Country: IN (occurrence: IN)
  Receive Date: 20240604
  Receipt Date: 20240604
  Transmission Date: 20240715
  Serious: Yes (Hospitalization)
  Sender: FDA-Public Use
  Company Number: IN-MYLANLABS-2024M1050047

PATIENT
  Age: 38 Year
  Sex: Female

DRUGS (1)
  1. METHOTREXATE [Suspect]
     Active Substance: METHOTREXATE
     Indication: Undifferentiated connective tissue disease
     Dosage: 20 MILLIGRAM, QW (5 WEEKS, CUMULATIVE DOSE: 100 MILLIGRAM)
     Route: 065

REACTIONS (7)
  - Toxicity to various agents [Unknown]
  - Pancytopenia [Unknown]
  - Mucosal inflammation [Unknown]
  - Diarrhoea [Unknown]
  - Dyspnoea [Unknown]
  - Hypoalbuminaemia [Unknown]
  - Off label use [Unknown]
